FAERS Safety Report 4445341-7 (Version None)
Quarter: 2004Q3

REPORT INFORMATION
  Report Type: 
  Country: None (occurrence: None)
  Receive Date: 20040909
  Receipt Date: 20040902
  Transmission Date: 20050211
  Serious: Yes (Death, Life-Threatening, Disabling)
  Sender: FDA-Public Use
  Company Number: US-MERCK-0409USA00184

PATIENT
  Age: 90 Year
  Sex: Male

DRUGS (2)
  1. ZOCOR [Suspect]
     Route: 048
  2. VERAPAMIL [Concomitant]
     Route: 065

REACTIONS (1)
  - DEATH [None]
